FAERS Safety Report 7208781-9 (Version None)
Quarter: 2011Q1

REPORT INFORMATION
  Report Type: 
  Country: None (occurrence: None)
  Receive Date: 20110104
  Receipt Date: 20101228
  Transmission Date: 20110831
  Serious: Yes (Disabling)
  Sender: FDA-Public Use
  Company Number: US-US-EMD SERONO, INC.-7033451

PATIENT
  Sex: Female

DRUGS (2)
  1. REBIF [Suspect]
     Indication: PRODUCT USED FOR UNKNOWN INDICATION
     Route: 058
     Dates: start: 20100416
  2. ADVIL [Concomitant]
     Indication: PREMEDICATION

REACTIONS (5)
  - PAIN [None]
  - VERTIGO [None]
  - INJECTION SITE REACTION [None]
  - SOMNOLENCE [None]
  - BLINDNESS UNILATERAL [None]
